FAERS Safety Report 23276613 (Version 1)
Quarter: 2023Q4

REPORT INFORMATION
  Report Type: Spontaneous
  Country: US (occurrence: None)
  Receive Date: 20231207
  Receipt Date: 20231207
  Transmission Date: 20240109
  Serious: Yes (Hospitalization)
  Sender: FDA-Public Use
  Company Number: None

PATIENT
  Sex: Male

DRUGS (14)
  1. PULMOZYME [Suspect]
     Active Substance: DORNASE ALFA
     Indication: Cystic fibrosis
     Dosage: OTHER QUANTITY : 2.5 MG/2.5ML;?
     Route: 055
     Dates: start: 20200325
  2. ALBUTEROL 90MCG INH VENTOL GEQ [Concomitant]
  3. ALTERA HANDSET [Concomitant]
  4. ALTERA NEBULIZER SYSTEM [Concomitant]
  5. CAYSTON [Concomitant]
     Active Substance: AZTREONAM
  6. CETIRIZINE [Concomitant]
     Active Substance: CETIRIZINE HYDROCHLORIDE
  7. COMPLETE FORM D3000 [Concomitant]
  8. CREON [Concomitant]
     Active Substance: PANCRELIPASE AMYLASE\PANCRELIPASE LIPASE\PANCRELIPASE PROTEASE
  9. FLOVENT HFA [Concomitant]
  10. SODIUM CHLORIDE [Concomitant]
     Active Substance: SODIUM CHLORIDE
  11. TOBRAMYCIN [Concomitant]
     Active Substance: TOBRAMYCIN
  12. TRIKAFTA [Concomitant]
     Active Substance: ELEXACAFTOR\IVACAFTOR\TEZACAFTOR
  13. URSODIOL [Concomitant]
     Active Substance: URSODIOL
  14. VENTOLIN HFA [Concomitant]
     Active Substance: ALBUTEROL SULFATE

REACTIONS (3)
  - Nasal congestion [None]
  - Nasal inflammation [None]
  - Productive cough [None]
